FAERS Safety Report 17927896 (Version 1)
Quarter: 2020Q2

REPORT INFORMATION
  Report Type: Report from Study
  Country: US (occurrence: US)
  Receive Date: 20200623
  Receipt Date: 20200623
  Transmission Date: 20200714
  Serious: Yes (Hospitalization)
  Sender: FDA-Public Use
  Company Number: US-GILEAD-2020-0474065

PATIENT
  Age: 53 Year
  Sex: Female

DRUGS (16)
  1. LINZESS [Concomitant]
     Active Substance: LINACLOTIDE
  2. AMBRISENTAN [Suspect]
     Active Substance: AMBRISENTAN
     Indication: PULMONARY HYPERTENSION
     Dosage: 5 MG, QD
     Route: 065
     Dates: start: 20190728
  3. ASPIRIN. [Concomitant]
     Active Substance: ASPIRIN
  4. CARAFATE [Concomitant]
     Active Substance: SUCRALFATE
  5. ZOFRAN [Concomitant]
     Active Substance: ONDANSETRON HYDROCHLORIDE
  6. ZOLPIDEM [Concomitant]
     Active Substance: ZOLPIDEM TARTRATE
  7. FOLIC ACID. [Concomitant]
     Active Substance: FOLIC ACID
  8. METOCLOPRAM [Concomitant]
     Active Substance: METOCLOPRAMIDE
  9. PROTONIX [Concomitant]
     Active Substance: PANTOPRAZOLE SODIUM
  10. FUROSEMIDE. [Concomitant]
     Active Substance: FUROSEMIDE
  11. GABAPENTIN. [Concomitant]
     Active Substance: GABAPENTIN
  12. LASIX [Concomitant]
     Active Substance: FUROSEMIDE
  13. PANTOPRAZOLE [Concomitant]
     Active Substance: PANTOPRAZOLE
  14. AMBIEN [Concomitant]
     Active Substance: ZOLPIDEM TARTRATE
  15. BACTRIM [Concomitant]
     Active Substance: SULFAMETHOXAZOLE\TRIMETHOPRIM
  16. SENNA ACUTIFOLIA [Concomitant]

REACTIONS (1)
  - COVID-19 [Unknown]
